FAERS Safety Report 17296893 (Version 2)
Quarter: 2020Q1

REPORT INFORMATION
  Report Type: Spontaneous
  Country: JP (occurrence: JP)
  Receive Date: 20200122
  Receipt Date: 20200210
  Transmission Date: 20200409
  Serious: Yes (Hospitalization, Other)
  Sender: FDA-Public Use
  Company Number: JP-SAKK-2020SA015776AA

PATIENT

DRUGS (4)
  1. IRINOTECAN HYDROCHLORIDE. [Concomitant]
     Active Substance: IRINOTECAN HYDROCHLORIDE
     Indication: COLON CANCER
     Route: 065
  2. ZALTRAP [Suspect]
     Active Substance: ZIV-AFLIBERCEPT
     Indication: PRODUCT USED FOR UNKNOWN INDICATION
     Dosage: UNK
     Route: 041
     Dates: start: 201911
  3. 5-FU [FLUOROURACIL] [Concomitant]
     Active Substance: FLUOROURACIL
     Indication: COLON CANCER
     Route: 042
  4. LEUCOVORIN [CALCIUM FOLINATE] [Concomitant]
     Active Substance: LEUCOVORIN
     Indication: COLON CANCER
     Route: 065

REACTIONS (2)
  - Neutrophil count decreased [Recovered/Resolved]
  - Urinary retention [Recovered/Resolved]
